FAERS Safety Report 6894232-0 (Version None)
Quarter: 2010Q3

REPORT INFORMATION
  Report Type: 
  Country: None (occurrence: None)
  Receive Date: 20100802
  Receipt Date: 20100720
  Transmission Date: 20110219
  Serious: Yes (Hospitalization)
  Sender: FDA-Public Use
  Company Number: PHHY2010US45423

PATIENT
  Sex: Male
  Weight: 88.9 kg

DRUGS (18)
  1. RECLAST [Suspect]
     Indication: OSTEOPOROSIS
     Dosage: 5 MG
     Route: 042
     Dates: start: 20100628
  2. ANDROGEL [Concomitant]
     Indication: HYPOGONADISM
     Dosage: 5MG, DAILY
     Route: 061
     Dates: start: 20070321
  3. ERGOCALCIFEROL [Concomitant]
     Indication: VITAMIN D DEFICIENCY
     Dosage: 50000 IU/MONTH
     Route: 048
     Dates: start: 20070321
  4. CIALIS [Concomitant]
     Indication: ERECTILE DYSFUNCTION
     Dosage: 20 MG, PRN
     Dates: start: 20070321
  5. LOMOTIL [Concomitant]
     Indication: COLITIS
     Dosage: 2.5 MG, TID
     Route: 048
     Dates: start: 20070101
  6. ACETAMINOPHEN [Concomitant]
     Dosage: 10.50MG
     Route: 048
     Dates: start: 20100628
  7. DIPHENHYDRAMINE [Concomitant]
     Dosage: 25-50MG PRN
     Route: 048
  8. EPINEPHRINE [Suspect]
     Dosage: 0.1 TO 0.5ML
     Route: 042
     Dates: start: 20100628
  9. LUMIGAN [Concomitant]
     Indication: GLAUCOMA
     Dosage: UNK
  10. TIMOLOL MALEATE [Concomitant]
     Indication: GLAUCOMA
  11. PRINIVIL [Concomitant]
     Indication: BLOOD PRESSURE
     Dosage: 200 MG, DAILY
     Route: 048
  12. ASACOL [Concomitant]
     Indication: COLITIS
     Dosage: 400MG, DAILY
     Route: 048
  13. PROTONIX [Concomitant]
     Indication: GASTROOESOPHAGEAL REFLUX DISEASE
     Dosage: 40MG, DAILY
     Route: 048
  14. ALLOPURINOL [Suspect]
     Indication: GOUT
     Dosage: 300MG, DAILY
     Route: 048
  15. HIDROXIZIN [Concomitant]
     Route: 048
  16. LASIX [Concomitant]
  17. POTASSIUM [Concomitant]
  18. LIDOCAINE [Concomitant]

REACTIONS (18)
  - AORTIC VALVE SCLEROSIS [None]
  - BUNDLE BRANCH BLOCK LEFT [None]
  - CARDIAC FAILURE CONGESTIVE [None]
  - CARDIOMEGALY [None]
  - CHEST PAIN [None]
  - DILATATION VENTRICULAR [None]
  - DYSPNOEA [None]
  - EJECTION FRACTION DECREASED [None]
  - FATIGUE [None]
  - INFLUENZA LIKE ILLNESS [None]
  - LEFT ATRIAL DILATATION [None]
  - LEFT VENTRICULAR DYSFUNCTION [None]
  - ORTHOPNOEA [None]
  - PAIN [None]
  - PULMONARY CONGESTION [None]
  - PULMONARY OEDEMA [None]
  - PYREXIA [None]
  - VENTRICULAR HYPOKINESIA [None]
